FAERS Safety Report 25052611 (Version 1)
Quarter: 2025Q1

REPORT INFORMATION
  Report Type: Spontaneous
  Country: US (occurrence: US)
  Receive Date: 20250307
  Receipt Date: 20250307
  Transmission Date: 20250409
  Serious: No
  Sender: HILL DERMACEUTICALS, INC.
  Company Number: US-Hill Dermaceuticals, Inc.-2172498

PATIENT

DRUGS (10)
  1. DERMA-SMOOTHE/FS [Suspect]
     Active Substance: FLUOCINOLONE ACETONIDE
     Indication: Product used for unknown indication
  2. MOMETASONE FUROATE [Suspect]
     Active Substance: MOMETASONE FUROATE
  3. OTEZLA [Suspect]
     Active Substance: APREMILAST
  4. HUMIRA [Concomitant]
     Active Substance: ADALIMUMAB
  5. SELENIUM SULFIDE [Suspect]
     Active Substance: SELENIUM SULFIDE
  6. CLOBETASOL PROPIONATE [Suspect]
     Active Substance: CLOBETASOL PROPIONATE
  7. TRIAMCINOLONE ACETONIDE [Suspect]
     Active Substance: TRIAMCINOLONE ACETONIDE
  8. FLUOCINONIDE [Suspect]
     Active Substance: FLUOCINONIDE
  9. DESOXIMETASONE [Suspect]
     Active Substance: DESOXIMETASONE
  10. HYDROCORTISONE [Suspect]
     Active Substance: HYDROCORTISONE

REACTIONS (2)
  - Pain [Unknown]
  - Pruritus [Unknown]
